FAERS Safety Report 9175304 (Version 1)
Quarter: 2013Q1

REPORT INFORMATION
  Report Type: Spontaneous
  Country: NL (occurrence: NL)
  Receive Date: 20130320
  Receipt Date: 20130320
  Transmission Date: 20140127
  Serious: Yes (Death)
  Sender: FDA-Public Use
  Company Number: NL-BAXTER-2013BAX007342

PATIENT
  Sex: Female

DRUGS (4)
  1. EXTRANEAL [Suspect]
     Indication: HAEMODIALYSIS COMPLICATION
     Route: 033
  2. NUTRINEAL PD4 MET 11G/L AMINOZUREN CLEARFLEX, OPLOSSING VOOR PERITONEA [Suspect]
     Indication: HAEMODIALYSIS COMPLICATION
     Route: 033
  3. PHYSIONEAL 40 GLUCOSE 2.27% W/V / 22.7 MG/ML [Suspect]
     Indication: HAEMODIALYSIS COMPLICATION
     Route: 033
  4. PHYSIONEAL 40 GLUCOSE 2.27% W/V / 22.7 MG/ML, SOLUTION FOR PERITONEAL [Suspect]
     Indication: HAEMODIALYSIS COMPLICATION
     Route: 033

REACTIONS (1)
  - Therapy cessation [Fatal]
